FAERS Safety Report 24330457 (Version 1)
Quarter: 2024Q3

REPORT INFORMATION
  Report Type: Spontaneous
  Country: GB (occurrence: GB)
  Receive Date: 20240918
  Receipt Date: 20240918
  Transmission Date: 20241017
  Serious: Yes (Disabling, Other)
  Sender: ORGANON
  Company Number: None

PATIENT

DRUGS (1)
  1. ELOCON [Suspect]
     Active Substance: MOMETASONE FUROATE
     Dosage: TWICE WEEKLY LONGTERM
     Dates: start: 2022

REACTIONS (1)
  - Muscle spasms [Not Recovered/Not Resolved]
